FAERS Safety Report 18386390 (Version 1)
Quarter: 2020Q4

REPORT INFORMATION
  Report Type: Spontaneous
  Country: GB (occurrence: GB)
  Receive Date: 20201015
  Receipt Date: 20201015
  Transmission Date: 20210114
  Serious: Yes (Other)
  Sender: FDA-Public Use
  Company Number: GB-PFIZER INC-2020394389

PATIENT
  Age: 19 Year
  Sex: Male
  Weight: 58 kg

DRUGS (5)
  1. QUETIAPINE. [Concomitant]
     Active Substance: QUETIAPINE
     Dosage: UNK
  2. LAMOTRIGINE. [Concomitant]
     Active Substance: LAMOTRIGINE
     Dosage: UNK
  3. FLUCONAZOLE. [Suspect]
     Active Substance: FLUCONAZOLE
     Indication: LYME DISEASE
     Dosage: 100 MG, 1X/DAY
     Route: 048
  4. TINIDAZOLE. [Suspect]
     Active Substance: TINIDAZOLE
     Indication: LYME DISEASE
     Dosage: 1000 MG, 1X/DAY
     Route: 048
     Dates: start: 20200915, end: 20200916
  5. DULOXETINE HYDROCHLORIDE. [Concomitant]
     Active Substance: DULOXETINE HYDROCHLORIDE
     Dosage: UNK

REACTIONS (6)
  - Musculoskeletal stiffness [Unknown]
  - Product use in unapproved indication [Unknown]
  - Dystonia [Recovered/Resolved]
  - Tachycardia [Recovered/Resolved]
  - Tremor [Unknown]
  - Off label use [Unknown]

NARRATIVE: CASE EVENT DATE: 20200916
